FAERS Safety Report 25522836 (Version 2)
Quarter: 2025Q3

REPORT INFORMATION
  Report Type: Spontaneous
  Country: EU (occurrence: EU)
  Receive Date: 20250707
  Receipt Date: 20250716
  Transmission Date: 20251020
  Serious: Yes (Other)
  Sender: AMICUS THERAPEUTICS
  Company Number: EU-AMICUS THERAPEUTICS, INC.-AMI_4138

PATIENT
  Age: 53 Year
  Sex: Male
  Weight: 73 kg

DRUGS (4)
  1. POMBILITI [Suspect]
     Active Substance: CIPAGLUCOSIDASE ALFA-ATGA
     Indication: Glycogen storage disease type II
     Dosage: 1470 MILLIGRAM, Q2WK
     Route: 042
     Dates: start: 202402, end: 20250623
  2. POMBILITI [Suspect]
     Active Substance: CIPAGLUCOSIDASE ALFA-ATGA
     Dosage: 1470 MILLIGRAM, Q2WK
     Route: 042
     Dates: start: 20250707
  3. OPFOLDA [Suspect]
     Active Substance: MIGLUSTAT
     Indication: Glycogen storage disease type II
     Dosage: 260 MILLIGRAM, Q2WK
     Route: 048
     Dates: start: 202402, end: 20250623
  4. OPFOLDA [Suspect]
     Active Substance: MIGLUSTAT
     Dosage: 260 MILLIGRAM, Q2WK
     Route: 048
     Dates: start: 20250707

REACTIONS (1)
  - Dental operation [Recovered/Resolved]

NARRATIVE: CASE EVENT DATE: 20250601
